FAERS Safety Report 7259113-1 (Version None)
Quarter: 2011Q1

REPORT INFORMATION
  Report Type: 
  Country: None (occurrence: None)
  Receive Date: 20110129
  Receipt Date: 20100812
  Transmission Date: 20110831
  Serious: Yes (Other)
  Sender: FDA-Public Use
  Company Number: US-ABBOTT-10P-163-0663880-00

PATIENT
  Sex: Male
  Weight: 83.99 kg

DRUGS (10)
  1. UNKNOWN EYE VITAMINS [Concomitant]
     Indication: PRODUCT USED FOR UNKNOWN INDICATION
  2. HUMIRA [Suspect]
     Indication: PSORIATIC ARTHROPATHY
  3. OMEPRAZOLE [Concomitant]
     Indication: GASTROOESOPHAGEAL REFLUX DISEASE
  4. AMLODIPINE [Concomitant]
     Indication: HYPERTENSION
  5. AVISTIN [Concomitant]
     Indication: MACULAR DEGENERATION
     Route: 050
  6. LISINOPRIL [Concomitant]
     Indication: HYPERTENSION
  7. HUMIRA [Suspect]
     Indication: PSORIASIS
     Route: 058
     Dates: start: 20060101
  8. VITAMIN B-12 [Concomitant]
     Indication: ANAEMIA
     Route: 050
  9. FISH OIL [Concomitant]
     Indication: PRODUCT USED FOR UNKNOWN INDICATION
  10. SIMVASTATIN [Concomitant]
     Indication: BLOOD CHOLESTEROL INCREASED

REACTIONS (1)
  - TREMOR [None]
